FAERS Safety Report 8362919-9 (Version None)
Quarter: 2012Q2

REPORT INFORMATION
  Report Type: 
  Country: None (occurrence: None)
  Receive Date: 20120516
  Receipt Date: 20120316
  Transmission Date: 20120825
  Serious: No
  Sender: FDA-Public Use
  Company Number: US-MYLANLABS-2012S1003229

PATIENT
  Age: 3 Month
  Sex: Female
  Weight: 4.54 kg

DRUGS (1)
  1. ALBUTEROL SULFATE [Suspect]
     Indication: UPPER RESPIRATORY TRACT CONGESTION
     Route: 055

REACTIONS (3)
  - IRRITABILITY [None]
  - TREMOR [None]
  - DYSKINESIA [None]
